FAERS Safety Report 17097910 (Version 1)
Quarter: 2019Q4

REPORT INFORMATION
  Report Type: Spontaneous
  Country: GB (occurrence: GB)
  Receive Date: 20191202
  Receipt Date: 20191202
  Transmission Date: 20200122
  Serious: Yes (Other)
  Sender: FDA-Public Use
  Company Number: NVSC2019GB048473

PATIENT
  Age: 60 Year
  Sex: Female
  Weight: 60.32 kg

DRUGS (1)
  1. BISOPROLOL FUMARATE. [Suspect]
     Active Substance: BISOPROLOL FUMARATE
     Indication: ATRIAL TACHYCARDIA
     Dosage: 2.5 MG
     Route: 048
     Dates: start: 20181208

REACTIONS (3)
  - Heart rate decreased [Unknown]
  - Condition aggravated [Not Recovered/Not Resolved]
  - Extrasystoles [Not Recovered/Not Resolved]

NARRATIVE: CASE EVENT DATE: 20181208
